FAERS Safety Report 8587990-0 (Version None)
Quarter: 2012Q3

REPORT INFORMATION
  Report Type: 
  Country: None (occurrence: None)
  Receive Date: 20120813
  Receipt Date: 20120801
  Transmission Date: 20120928
  Serious: Yes (Other)
  Sender: FDA-Public Use
  Company Number: FR-BRISTOL-MYERS SQUIBB COMPANY-16838278

PATIENT
  Age: 61 Year
  Sex: Female

DRUGS (1)
  1. KENACORT [Suspect]
     Dosage: DOSE: 80 MG IN 1 SINGLE INTAKE FORMULATION:. KENACORT RETARD 80 MG/2 ML, SUSPENSION FOR INJECTION
     Route: 030
     Dates: start: 20110801

REACTIONS (1)
  - INJECTION SITE NECROSIS [None]
